FAERS Safety Report 14695700 (Version 3)
Quarter: 2018Q2

REPORT INFORMATION
  Report Type: Report from Study
  Country: US (occurrence: US)
  Receive Date: 20180329
  Receipt Date: 20180621
  Transmission Date: 20180711
  Serious: Yes (Death, Hospitalization, Other)
  Sender: FDA-Public Use
  Company Number: US-EXELIXIS-CABO-18013162

PATIENT
  Sex: Female

DRUGS (9)
  1. MIRAPEX [Concomitant]
     Active Substance: PRAMIPEXOLE DIHYDROCHLORIDE
  2. ARIMIDEX [Suspect]
     Active Substance: ANASTROZOLE
     Indication: BREAST CANCER
  3. POTASSIUM [Concomitant]
     Active Substance: POTASSIUM
  4. CALCIUM +D [Concomitant]
     Active Substance: CALCIUM\VITAMIN D
  5. COLACE [Concomitant]
     Active Substance: DOCUSATE SODIUM
  6. CABOMETYX [Suspect]
     Active Substance: CABOZANTINIB S-MALATE
     Indication: RENAL CELL CARCINOMA
     Dosage: UNK
  7. RANITIDINE. [Concomitant]
     Active Substance: RANITIDINE
  8. ELAVIL [Concomitant]
     Active Substance: AMITRIPTYLINE HYDROCHLORIDE
  9. VITAMIN D [Concomitant]
     Active Substance: CHOLECALCIFEROL

REACTIONS (14)
  - Deep vein thrombosis [Unknown]
  - Acute kidney injury [Unknown]
  - Pleural effusion [Unknown]
  - Intracardiac mass [Unknown]
  - Cardiac failure congestive [Fatal]
  - Cardiomyopathy [Unknown]
  - Intracardiac thrombus [Unknown]
  - Electrocardiogram ST segment depression [Unknown]
  - Malignant neoplasm progression [Unknown]
  - Pericardial effusion [Unknown]
  - Diarrhoea [Recovered/Resolved]
  - Bacteraemia [Unknown]
  - Pneumonia pneumococcal [Unknown]
  - Hypertension [Unknown]
